FAERS Safety Report 16061148 (Version 1)
Quarter: 2019Q1

REPORT INFORMATION
  Report Type: Spontaneous
  Country: US (occurrence: US)
  Receive Date: 20190312
  Receipt Date: 20190312
  Transmission Date: 20190418
  Serious: No
  Sender: FDA-Public Use
  Company Number: US-ROCHE-2169100

PATIENT
  Age: 72 Year
  Sex: Female
  Weight: 89.62 kg

DRUGS (5)
  1. AVASTIN [Suspect]
     Active Substance: BEVACIZUMAB
     Route: 042
     Dates: start: 20180719
  2. AVASTIN [Suspect]
     Active Substance: BEVACIZUMAB
     Route: 042
  3. DOXIL [Concomitant]
     Active Substance: DOXORUBICIN HYDROCHLORIDE
     Dosage: 28 DAY CYCLE; RECEIVES ONLY ON DAY 1 OF CYCLE ;ONGOING: UNKNOWN
     Route: 042
  4. AVASTIN [Suspect]
     Active Substance: BEVACIZUMAB
     Indication: PRODUCT USED FOR UNKNOWN INDICATION
     Dosage: 28 DAY CYCLE; RECEIVES AVASTIN DAY 1 AND DAY 15 ;ONGOING: UNKNOWN
     Route: 042
     Dates: start: 20180705
  5. CARBOPLATIN. [Suspect]
     Active Substance: CARBOPLATIN
     Indication: PRODUCT USED FOR UNKNOWN INDICATION
     Dosage: 28 DAY CYCLE; RECEIVES ONLY ON DAY 1 OF CYCLE ;ONGOING: UNKNOWN
     Route: 042

REACTIONS (4)
  - Limb discomfort [Unknown]
  - Hypertension [Unknown]
  - Dyspnoea [Unknown]
  - Hypoaesthesia [Unknown]

NARRATIVE: CASE EVENT DATE: 20180809
